FAERS Safety Report 15699761 (Version 1)
Quarter: 2018Q4

REPORT INFORMATION
  Report Type: Spontaneous
  Country: FR (occurrence: FR)
  Receive Date: 20181207
  Receipt Date: 20181207
  Transmission Date: 20190205
  Serious: Yes (Hospitalization)
  Sender: FDA-Public Use
  Company Number: FR-JNJFOC-20181202083

PATIENT
  Age: 62 Year
  Sex: Male

DRUGS (17)
  1. CISPLATINE [Suspect]
     Active Substance: CISPLATIN
     Indication: BLADDER CANCER
     Route: 042
     Dates: start: 201808
  2. METHOTREXATE. [Suspect]
     Active Substance: METHOTREXATE
     Indication: BLADDER CANCER
     Route: 042
     Dates: start: 201808
  3. DOXORUBICINE [Suspect]
     Active Substance: DOXORUBICIN
     Indication: BLADDER CANCER
     Route: 042
     Dates: start: 201808
  4. LERCAN [Concomitant]
     Active Substance: LERCANIDIPINE
     Route: 048
     Dates: start: 20181005
  5. PAROXETINE. [Concomitant]
     Active Substance: PAROXETINE
     Route: 048
  6. DIAMICRON [Concomitant]
     Active Substance: GLICLAZIDE
     Route: 048
  7. LANTUS [Concomitant]
     Active Substance: INSULIN GLARGINE
     Route: 058
  8. VICTOZA [Suspect]
     Active Substance: LIRAGLUTIDE
     Indication: TYPE 2 DIABETES MELLITUS
     Route: 058
  9. MODURETIC 5-50 [Suspect]
     Active Substance: AMILORIDE HYDROCHLORIDE\HYDROCHLOROTHIAZIDE
     Indication: HYPERTENSION
     Route: 048
     Dates: start: 20181005
  10. NEBILOX [Concomitant]
     Active Substance: NEBIVOLOL HYDROCHLORIDE
     Route: 048
     Dates: start: 20181005
  11. INNOHEP [Concomitant]
     Active Substance: TINZAPARIN SODIUM
     Route: 058
     Dates: start: 20181005
  12. METFORMINE [Concomitant]
     Active Substance: METFORMIN HYDROCHLORIDE
     Route: 048
  13. TARDYFERON [Concomitant]
     Active Substance: FERROUS SULFATE
     Route: 048
  14. VINBLASTINE [Suspect]
     Active Substance: VINBLASTINE
     Indication: BLADDER CANCER
     Route: 042
     Dates: start: 201808
  15. SIMVASTATINE [Suspect]
     Active Substance: SIMVASTATIN
     Indication: DYSLIPIDAEMIA
     Route: 048
  16. SPECIAFOLDINE [Concomitant]
     Active Substance: FOLIC ACID
     Route: 048
  17. ALDACTONE [Suspect]
     Active Substance: SPIRONOLACTONE
     Indication: HYPERTENSION
     Route: 048

REACTIONS (3)
  - Off label use [Unknown]
  - Product use in unapproved indication [Unknown]
  - Pancreatitis acute [Recovered/Resolved]

NARRATIVE: CASE EVENT DATE: 20181019
